FAERS Safety Report 7407642-X (Version None)
Quarter: 2011Q2

REPORT INFORMATION
  Report Type: 
  Country: None (occurrence: None)
  Receive Date: 20110401
  Receipt Date: 20110318
  Transmission Date: 20111010
  Serious: Yes (Hospitalization)
  Sender: FDA-Public Use
  Company Number: 029626

PATIENT
  Age: 59 Year
  Sex: Male

DRUGS (7)
  1. AMITRIPTYLINE [Concomitant]
  2. SIMVASTATIN [Concomitant]
  3. BENDROFLUAZIDE [Concomitant]
  4. DICLOFENAC [Concomitant]
  5. CIMZIA [Suspect]
     Indication: RHEUMATOID ARTHRITIS
     Dosage: (SUBCUTANEOUS)
     Route: 058
     Dates: end: 20100922
  6. RAMIPRIL [Concomitant]
  7. OMEPRAZOLE [Concomitant]

REACTIONS (3)
  - IMMUNOSUPPRESSION [None]
  - SEPSIS [None]
  - HYPOXIA [None]
